FAERS Safety Report 11640542 (Version 1)
Quarter: 2015Q4

REPORT INFORMATION
  Report Type: Report from Study
  Country: US (occurrence: US)
  Receive Date: 20151019
  Receipt Date: 20151019
  Transmission Date: 20160304
  Serious: Yes (Hospitalization, Other)
  Sender: FDA-Public Use
  Company Number: US-ABBVIE-15K-163-1480879-00

PATIENT
  Sex: Female

DRUGS (2)
  1. LUPRON DEPOT [Suspect]
     Active Substance: LEUPROLIDE ACETATE
     Route: 050
     Dates: start: 1990, end: 1990
  2. LUPRON DEPOT [Suspect]
     Active Substance: LEUPROLIDE ACETATE
     Indication: ENDOMETRIOSIS
     Route: 050
     Dates: start: 2014, end: 2014

REACTIONS (6)
  - Endometrial ablation [Unknown]
  - Normal newborn [Unknown]
  - Exposure during pregnancy [Unknown]
  - Endometriosis [Unknown]
  - Pain [Unknown]
  - Endometriosis [Unknown]

NARRATIVE: CASE EVENT DATE: 1997
